FAERS Safety Report 13367638 (Version 1)
Quarter: 2017Q1

REPORT INFORMATION
  Report Type: Spontaneous
  Country: US (occurrence: US)
  Receive Date: 20170324
  Receipt Date: 20170324
  Transmission Date: 20170429
  Serious: No
  Sender: FDA-Public Use
  Company Number: US-009507513-1702USA011804

PATIENT
  Age: 23 Year
  Sex: Female

DRUGS (1)
  1. NEXPLANON [Suspect]
     Active Substance: ETONOGESTREL
     Indication: CONTRACEPTION
     Dosage: 1 IMPLANT, UNK
     Route: 030

REACTIONS (4)
  - Complication associated with device [Recovered/Resolved]
  - Complication of device removal [Recovered/Resolved]
  - Device deployment issue [Recovered/Resolved]
  - Device difficult to use [Recovered/Resolved]
